FAERS Safety Report 8512608-2 (Version None)
Quarter: 2012Q2

REPORT INFORMATION
  Report Type: 
  Country: None (occurrence: None)
  Receive Date: 20120405
  Receipt Date: 20081020
  Transmission Date: 20120825
  Serious: Yes (Disabling)
  Sender: FDA-Public Use
  Company Number: PHEH2008US07075

PATIENT
  Age: 79 Year
  Sex: Female
  Weight: 34.5 kg

DRUGS (3)
  1. RECLAST [Suspect]
     Indication: OSTEOPOROSIS
     Dosage: UNK, INFUSION
     Dates: start: 20080421
  2. DIGESTIVE ENZYMES (NO INGREDIENTS/SUBSTANCES) [Concomitant]
  3. CALCIUM [Concomitant]

REACTIONS (5)
  - DIARRHOEA [None]
  - MYALGIA [None]
  - FATIGUE [None]
  - ASTHENIA [None]
  - ARTHRALGIA [None]
